FAERS Safety Report 8143997-9 (Version None)
Quarter: 2012Q1

REPORT INFORMATION
  Report Type: 
  Country: None (occurrence: None)
  Receive Date: 20120217
  Receipt Date: 20120217
  Transmission Date: 20120608
  Serious: Yes (Other)
  Sender: FDA-Public Use
  Company Number: None

PATIENT
  Age: 59 Year
  Sex: Male
  Weight: 76.203 kg

DRUGS (1)
  1. APIDRA [Suspect]

REACTIONS (1)
  - DEVICE OCCLUSION [None]
